FAERS Safety Report 8182142 (Version 3)
Quarter: 2012Q4

REPORT INFORMATION
  Report Type: 
  Country: NO (occurrence: NO)
  Receive Date: 20111014
  Receipt Date: 20120831
  Transmission Date: 20130627
  Serious: Yes (Death, Other)
  Sender: FDA-Public Use
  Company Number: NO-BRISTOL-MYERS SQUIBB COMPANY-16146177

PATIENT
  Age: 49 Year
  Sex: Male

DRUGS (7)
  1. CYCLOPHOSPHAMIDE [Suspect]
     Indication: HODGKIN^S DISEASE
     Dosage: 650mg/m2 standard cycles
1250 for the escalated cycles
     Route: 042
  2. ETOPOSIDE [Suspect]
     Indication: HODGKIN^S DISEASE
     Dosage: 100mg/m2 for the standard cycles D1 to 3; 200mg/m2 for the escalated cycles from D1-3 IV
     Route: 042
  3. DOXORUBICIN [Suspect]
     Indication: HODGKIN^S DISEASE
     Dosage: 35mg/m2,On D1 for escalated cycles
     Route: 042
  4. BLEOMYCIN SULFATE [Suspect]
     Indication: HODGKIN^S DISEASE
     Dosage: on D8
     Route: 042
  5. VINCRISTINE [Suspect]
     Indication: HODGKIN^S DISEASE
     Dosage: on D8
     Route: 042
  6. PREDNISOLONE [Suspect]
     Indication: HODGKIN^S DISEASE
     Dosage: on days 1 to 14 in every 21 day cycle treatment for 6 cycles
     Route: 048
  7. PROCARBAZINE [Suspect]
     Indication: HODGKIN^S DISEASE
     Dosage: Day1-7
     Route: 048

REACTIONS (6)
  - Septic shock [Fatal]
  - Infection [Fatal]
  - Bone marrow failure [Unknown]
  - Lung infiltration [Unknown]
  - Pyrexia [Unknown]
  - Pneumocystis jiroveci pneumonia [Recovered/Resolved]
